FAERS Safety Report 25241068 (Version 2)
Quarter: 2025Q2

REPORT INFORMATION
  Report Type: Spontaneous
  Country: JP (occurrence: JP)
  Receive Date: 20250425
  Receipt Date: 20250528
  Transmission Date: 20250717
  Serious: No
  Sender: MERCK SHARP & DOHME LLC
  Company Number: JP-009507513-2279463

PATIENT
  Age: 93 Year
  Sex: Female

DRUGS (2)
  1. LAGEVRIO [Suspect]
     Active Substance: MOLNUPIRAVIR
     Route: 048
     Dates: start: 20250417, end: 20250417
  2. LAGEVRIO [Suspect]
     Active Substance: MOLNUPIRAVIR
     Route: 048
     Dates: start: 20250418, end: 20250422

REACTIONS (1)
  - Accidental overdose [Unknown]

NARRATIVE: CASE EVENT DATE: 20250417
